FAERS Safety Report 11371728 (Version 1)
Quarter: 2015Q3

REPORT INFORMATION
  Report Type: Other
  Country: GB (occurrence: GB)
  Receive Date: 20150812
  Receipt Date: 20150812
  Transmission Date: 20151125
  Serious: Yes (Hospitalization)
  Sender: FDA-Public Use
  Company Number: GB-MYLANLABS-2015M1025919

PATIENT

DRUGS (24)
  1. CODEINE [Concomitant]
     Active Substance: CODEINE
  2. EXENATIDE [Concomitant]
     Active Substance: EXENATIDE
  3. ASPIRIN                            /00002701/ [Concomitant]
     Active Substance: ASPIRIN
  4. ATORVASTATIN [Concomitant]
     Active Substance: ATORVASTATIN
  5. FYBOGEL [Concomitant]
     Active Substance: PLANTAGO OVATA SEED
  6. OXYCODONE [Concomitant]
     Active Substance: OXYCODONE
  7. ACIDEX                             /01521901/ [Concomitant]
     Active Substance: CALCIUM CARBONATE\SODIUM ALGINATE\SODIUM BICARBONATE
  8. SALBUTAMOL [Concomitant]
     Active Substance: ALBUTEROL
  9. LOSARTAN. [Suspect]
     Active Substance: LOSARTAN
     Dosage: 50 MG, QD
     Route: 048
  10. FEXOFENADINE [Concomitant]
     Active Substance: FEXOFENADINE\FEXOFENADINE HYDROCHLORIDE
  11. HYDROMOL                           /00906601/ [Concomitant]
  12. IBUPROFEN. [Suspect]
     Active Substance: IBUPROFEN
     Indication: PAIN
     Dosage: 400 MG, THREE TIMES A DAY, AS NECESSARY
     Route: 048
  13. CYCLIZINE [Concomitant]
     Active Substance: CYCLIZINE
  14. DOCUSATE [Concomitant]
     Active Substance: DOCUSATE
  15. ALLOPURINOL. [Suspect]
     Active Substance: ALLOPURINOL
     Indication: GOUT
     Dosage: 300 MG, QD
     Route: 048
  16. INSULIN ISOPHANE HUMAN SEMISYNTHETIC [Concomitant]
  17. SENNA [Concomitant]
     Active Substance: SENNA LEAF\SENNOSIDES\SENNOSIDES A AND B
  18. SERETIDE [Concomitant]
     Active Substance: FLUTICASONE FUROATE\SALMETEROL XINAFOATE
  19. TIOTROPIUM [Concomitant]
     Active Substance: TIOTROPIUM
  20. METFORMIN [Suspect]
     Active Substance: METFORMIN HYDROCHLORIDE
     Indication: DIABETES MELLITUS
     Dosage: 1 G, BID
     Route: 048
  21. MOVICOL [Concomitant]
     Active Substance: POLYETHYLENE GLYCOL 3350\POTASSIUM CHLORIDE\SODIUM BICARBONATE\SODIUM CHLORIDE
  22. ONDANSETRON [Concomitant]
     Active Substance: ONDANSETRON
  23. GABAPENTIN. [Concomitant]
     Active Substance: GABAPENTIN
  24. PARACETAMOL [Concomitant]
     Active Substance: ACETAMINOPHEN

REACTIONS (2)
  - Hyperkalaemia [Recovered/Resolved]
  - Acute kidney injury [Recovered/Resolved]
